FAERS Safety Report 9479267 (Version 3)
Quarter: 2014Q2

REPORT INFORMATION
  Report Type: Spontaneous
  Country: CN (occurrence: CN)
  Receive Date: 20130827
  Receipt Date: 20140515
  Transmission Date: 20141212
  Serious: Yes (Other)
  Sender: FDA-Public Use
  Company Number: CN-ROCHE-1267065

PATIENT
  Age: 40 Year
  Sex: Male

DRUGS (2)
  1. LUCENTIS [Suspect]
     Indication: RETINAL VEIN OCCLUSION
     Route: 050
     Dates: start: 20130820, end: 20130820
  2. LUCENTIS [Suspect]
     Indication: OFF LABEL USE

REACTIONS (1)
  - Cerebral infarction [Unknown]
